FAERS Safety Report 9433684 (Version 4)
Quarter: 2014Q1

REPORT INFORMATION
  Report Type: Report from Study
  Country: BR (occurrence: BR)
  Receive Date: 20130731
  Receipt Date: 20140115
  Transmission Date: 20141002
  Serious: Yes (Death, Hospitalization, Disabling, Other)
  Sender: FDA-Public Use
  Company Number: BR-ROCHE-785370

PATIENT
  Age: 47 Year
  Sex: Female
  Weight: 104 kg

DRUGS (24)
  1. MABTHERA [Suspect]
     Indication: RHEUMATOID ARTHRITIS
     Dosage: DATE OF THE MOST RECENT INFUSION  : 08/AUG/2013
     Route: 042
     Dates: start: 20090501, end: 201007
  2. MABTHERA [Suspect]
     Route: 065
  3. BACTRIM [Suspect]
     Indication: PRODUCT USED FOR UNKNOWN INDICATION
     Route: 065
  4. XENICAL [Concomitant]
     Route: 065
  5. RIVOTRIL [Concomitant]
     Route: 065
  6. SLOW-K [Concomitant]
     Route: 065
  7. PLENTY [Concomitant]
     Route: 065
  8. DEFLAZACORT [Concomitant]
     Route: 065
  9. CEBRALAT [Concomitant]
     Route: 065
  10. CYMBALTA [Concomitant]
     Route: 065
  11. ALENDRONATE SODIUM [Concomitant]
     Route: 065
  12. FOLIC ACID [Concomitant]
     Route: 065
  13. OS-CAL [Concomitant]
  14. MIOSAN [Concomitant]
     Route: 065
  15. CITALOR [Concomitant]
     Route: 065
  16. PLAVIX [Concomitant]
  17. PANTOPRAZOLE [Concomitant]
  18. PREDNISONE [Concomitant]
  19. OLMETEC [Concomitant]
  20. CITALOR [Concomitant]
  21. POTASSIUM CHLORIDE [Concomitant]
  22. METHOTREXATE [Concomitant]
  23. NORIPURUM [Concomitant]
  24. ATORVASTATIN [Concomitant]

REACTIONS (12)
  - Pneumonia [Fatal]
  - Multi-organ failure [Fatal]
  - Gait disturbance [Not Recovered/Not Resolved]
  - Cataract [Recovering/Resolving]
  - Cardiac disorder [Unknown]
  - Hypersensitivity [Not Recovered/Not Resolved]
  - Arrhythmia [Recovered/Resolved]
  - Arthritis [Not Recovered/Not Resolved]
  - Ear infection [Unknown]
  - Pyrexia [Unknown]
  - Headache [Unknown]
  - Urinary tract infection [Unknown]
